FAERS Safety Report 5397440-3 (Version None)
Quarter: 2007Q3

REPORT INFORMATION
  Report Type: 
  Country: None (occurrence: None)
  Receive Date: 20070726
  Receipt Date: 20070716
  Transmission Date: 20080115
  Serious: Yes (Life-Threatening, Hospitalization)
  Sender: FDA-Public Use
  Company Number: FR-SOLVAY-00207033217

PATIENT
  Age: 91 Year
  Sex: Female

DRUGS (4)
  1. PERINDOPRIL ERBUMINE [Suspect]
     Indication: HYPERTENSION
     Dosage: DAILY DOSE: 4 MILLIGRAM(S)
     Route: 048
     Dates: end: 20070530
  2. KARDEGIC [Suspect]
     Indication: ATRIAL FIBRILLATION
     Dosage: DAILY DOSE: 75 MILLIGRAM(S)
     Route: 048
     Dates: end: 20070530
  3. LASIX [Suspect]
     Indication: HYPERTENSION
     Dosage: DAILY DOSE: 40 MILLIGRAM(S)
     Route: 048
     Dates: end: 20070530
  4. LERCAN [Suspect]
     Indication: HYPERTENSION
     Dosage: DAILY DOSE: 10 MILLIGRAM(S)
     Route: 048
     Dates: end: 20070530

REACTIONS (3)
  - GASTRIC ULCER PERFORATION [None]
  - INTESTINAL OBSTRUCTION [None]
  - PERITONITIS [None]
